FAERS Safety Report 17942714 (Version 3)
Quarter: 2020Q3

REPORT INFORMATION
  Report Type: Spontaneous
  Country: US (occurrence: US)
  Receive Date: 20200625
  Receipt Date: 20200825
  Transmission Date: 20201103
  Serious: No
  Sender: FDA-Public Use
  Company Number: US-BIOGEN-2020BI00838342

PATIENT
  Sex: Female

DRUGS (3)
  1. TEA TREE OIL. [Concomitant]
     Active Substance: TEA TREE OIL
     Route: 065
  2. FERROUS SULFATE. [Concomitant]
     Active Substance: FERROUS SULFATE
     Indication: ANAEMIA
     Route: 065
  3. TYSABRI [Suspect]
     Active Substance: NATALIZUMAB
     Indication: MULTIPLE SCLEROSIS
     Route: 065
     Dates: start: 20190326, end: 20200221

REACTIONS (9)
  - Pain [Not Recovered/Not Resolved]
  - Headache [Not Recovered/Not Resolved]
  - Disorientation [Unknown]
  - Cystitis [Recovered/Resolved]
  - Mobility decreased [Unknown]
  - Rash macular [Not Recovered/Not Resolved]
  - Anaemia [Unknown]
  - Illness [Unknown]
  - Somnolence [Not Recovered/Not Resolved]
